FAERS Safety Report 9921326 (Version 1)
Quarter: 2014Q1

REPORT INFORMATION
  Report Type: Report from Study
  Country: BR (occurrence: BR)
  Receive Date: 20140225
  Receipt Date: 20140225
  Transmission Date: 20141002
  Serious: Yes (Hospitalization, Disabling)
  Sender: FDA-Public Use
  Company Number: PHHY2014BR021945

PATIENT
  Sex: Female
  Weight: 53 kg

DRUGS (4)
  1. EXELON [Suspect]
     Indication: MEMORY IMPAIRMENT
     Dosage: 1 DF, (3 MG) DAILY
     Route: 048
  2. EXELON [Suspect]
     Indication: DEMENTIA ALZHEIMER^S TYPE
  3. SINGULAR [Concomitant]
     Indication: ASTHMA
     Dosage: 10 MG, UNK
  4. OMEPRAZOLE [Concomitant]
     Indication: GASTRIC DISORDER
     Dosage: 40 MG, UNK

REACTIONS (3)
  - Cerebrovascular accident [Recovered/Resolved]
  - Deformity [Recovered/Resolved]
  - Hand deformity [Recovered/Resolved]
